FAERS Safety Report 7273167-8 (Version None)
Quarter: 2011Q1

REPORT INFORMATION
  Report Type: 
  Country: None (occurrence: None)
  Receive Date: 20110203
  Receipt Date: 20101202
  Transmission Date: 20110831
  Serious: No
  Sender: FDA-Public Use
  Company Number: US-ABBOTT-10P-163-0689781-00

PATIENT
  Age: 27 Year
  Sex: Female
  Weight: 83.99 kg

DRUGS (1)
  1. SYNTHROID [Suspect]
     Indication: HYPOTHYROIDISM
     Dosage: 1 PILL IN THE MORNING
     Route: 048

REACTIONS (5)
  - DYSPNOEA [None]
  - PALPITATIONS [None]
  - CHEST PAIN [None]
  - ANXIETY [None]
  - ALOPECIA [None]
